FAERS Safety Report 15809110 (Version 2)
Quarter: 2019Q1

REPORT INFORMATION
  Report Type: Spontaneous
  Country: KR (occurrence: KR)
  Receive Date: 20190110
  Receipt Date: 20190119
  Transmission Date: 20190417
  Serious: Yes (Hospitalization, Other)
  Sender: FDA-Public Use
  Company Number: PHHY2019KR001804

PATIENT
  Age: 18 Year
  Sex: Male

DRUGS (2)
  1. METHYLPREDNISOLONE. [Suspect]
     Active Substance: METHYLPREDNISOLONE
     Indication: NEPHROTIC SYNDROME
     Dosage: 30 MG/KG, HIGH DOSE, PULSE THERAPY
     Route: 042
  2. CICLOSPORIN [Suspect]
     Active Substance: CYCLOSPORINE
     Indication: NEPHROTIC SYNDROME
     Dosage: UNK UKN, UNK
     Route: 065

REACTIONS (2)
  - Upper respiratory tract infection [Unknown]
  - Acute kidney injury [Recovered/Resolved]
